FAERS Safety Report 24041420 (Version 3)
Quarter: 2024Q3

REPORT INFORMATION
  Report Type: Spontaneous
  Country: US (occurrence: US)
  Receive Date: 20240702
  Receipt Date: 20240712
  Transmission Date: 20241017
  Serious: Yes (Hospitalization, Other)
  Sender: ROCHE
  Company Number: US-ROCHE-10000012715

PATIENT
  Sex: Male

DRUGS (4)
  1. ACTEMRA [Suspect]
     Active Substance: TOCILIZUMAB
     Indication: Product used for unknown indication
     Route: 065
  2. XELJANZ [Concomitant]
     Active Substance: TOFACITINIB CITRATE
  3. PREDNISONE [Concomitant]
     Active Substance: PREDNISONE
     Dosage: DOSE 1 MG/KG/DOSE
     Route: 048
  4. ILARIS [Concomitant]
     Active Substance: CANAKINUMAB

REACTIONS (7)
  - Anaphylactic reaction [Unknown]
  - Still^s disease [Unknown]
  - Interstitial lung disease [Unknown]
  - Interleukin level increased [Unknown]
  - HLA marker study positive [Unknown]
  - Haemophagocytic lymphohistiocytosis [Unknown]
  - Tryptase increased [Unknown]
